FAERS Safety Report 18851005 (Version 4)
Quarter: 2021Q2

REPORT INFORMATION
  Report Type: Other
  Country: GB (occurrence: GB)
  Receive Date: 20210205
  Receipt Date: 20210518
  Transmission Date: 20210717
  Serious: Yes (Death)
  Sender: FDA-Public Use
  Company Number: GB-CELLTRION INC.-2020GB019211

PATIENT

DRUGS (51)
  1. MACROGOL [Concomitant]
     Active Substance: POLYETHYLENE GLYCOLS
     Indication: CONSTIPATION
     Dosage: SACHETS
     Route: 048
     Dates: start: 20200303, end: 20200331
  2. DEXAMETHASONE. [Concomitant]
     Active Substance: DEXAMETHASONE
     Indication: URINARY INCONTINENCE
     Dosage: 2 MG, QD
     Route: 048
     Dates: start: 20190805
  3. DEXAMETHASONE. [Concomitant]
     Active Substance: DEXAMETHASONE
     Indication: PAIN
     Dosage: 4 MG, QD
     Route: 048
     Dates: start: 20190412
  4. PARACETAMOL [Concomitant]
     Active Substance: ACETAMINOPHEN
     Dosage: 1 G, (EVERY 0.25 DAY)
     Route: 048
     Dates: start: 20190930
  5. TAZOCIN [Concomitant]
     Active Substance: PIPERACILLIN SODIUM\TAZOBACTAM SODIUM
     Dosage: 4.5 G, (EVERY 0.33 DAY)
     Route: 042
     Dates: start: 20191005, end: 20191007
  6. OMEPRAZOLE. [Concomitant]
     Active Substance: OMEPRAZOLE
     Dosage: 20 MG, QD
     Route: 048
     Dates: start: 20190329
  7. IRON SUCROSE [Concomitant]
     Active Substance: IRON SUCROSE
     Indication: ANAEMIA
     Dosage: 200 MG, QD
     Route: 042
     Dates: start: 20200313, end: 20200326
  8. BISACODYL. [Concomitant]
     Active Substance: BISACODYL
     Indication: CONSTIPATION
     Dosage: 10 MG
     Route: 054
     Dates: start: 20200315, end: 20200315
  9. PREGABALIN. [Concomitant]
     Active Substance: PREGABALIN
     Dosage: 75 MG (EVERY 0.5 DAY)
     Route: 048
     Dates: start: 20190930
  10. OXYCODONE [Concomitant]
     Active Substance: OXYCODONE
     Dosage: 10 MG (EVERY 0.5 DAY)
     Route: 048
     Dates: start: 20191003
  11. MORPHINE SULPHATE [Concomitant]
     Active Substance: MORPHINE SULFATE
     Dosage: 20 MG (EVERY 0.5 DAY)
     Route: 048
     Dates: start: 20191002, end: 20191003
  12. DOCETAXEL. [Suspect]
     Active Substance: DOCETAXEL
     Dosage: 200 MG
     Route: 042
     Dates: start: 20171120, end: 20180101
  13. SENNA ALEXANDRINA [Concomitant]
     Active Substance: SENNA LEAF
     Dosage: 15 MG, QD
     Route: 048
     Dates: start: 20191001, end: 201910
  14. MACROGOL [Concomitant]
     Active Substance: POLYETHYLENE GLYCOLS
     Dosage: SACHET
     Route: 048
     Dates: start: 20190630, end: 20190630
  15. MORPHINE SULPHATE [Concomitant]
     Active Substance: MORPHINE SULFATE
     Dosage: 10 MG (EVERY 0.5 DAY)
     Route: 048
     Dates: start: 20191003, end: 20191003
  16. DOCETAXEL. [Suspect]
     Active Substance: DOCETAXEL
     Indication: BREAST CANCER
     Dosage: 180 MILLIGRAM, EVERY 3 WEEKS
     Route: 042
     Dates: start: 20180122
  17. LEVOBUPIVACAINE [Concomitant]
     Active Substance: LEVOBUPIVACAINE
     Indication: PAIN IN EXTREMITY
     Dosage: 5 ML, HOURLY
     Route: 058
     Dates: start: 20200304, end: 20200331
  18. ADCAL D3 [Concomitant]
     Active Substance: CALCIUM CARBONATE\CHOLECALCIFEROL
     Indication: PROPHYLAXIS
     Dosage: 1 DOSAGE FORM, QD
     Route: 048
     Dates: start: 20171120
  19. DIHYDROCODEINE [Concomitant]
     Active Substance: DIHYDROCODEINE
     Indication: PAIN IN EXTREMITY
     Dosage: 30 MG, EVERY 4 DAYS
     Route: 048
     Dates: start: 20200303, end: 20200331
  20. DOCUSATE SODIUM. [Concomitant]
     Active Substance: DOCUSATE SODIUM
     Indication: CONSTIPATION
     Dosage: 100 MG, 0.33 DAY
     Route: 048
     Dates: start: 20191003
  21. LORAZEPAM. [Concomitant]
     Active Substance: LORAZEPAM
     Indication: ANXIETY
     Dosage: 1 MG, QD
     Route: 048
     Dates: start: 20190629, end: 20190629
  22. SODIUM CITRATE. [Concomitant]
     Active Substance: SODIUM CITRATE
     Indication: CONSTIPATION
     Dosage: 450 MG, RECTUM
     Dates: start: 20200315, end: 20200315
  23. TRASTUZUMAB (UNKNOWN) [Suspect]
     Active Substance: TRASTUZUMAB
     Dosage: 515 MILLIGRAM, Q4WK
     Route: 042
     Dates: start: 20171211, end: 20190329
  24. SENNA ALEXANDRINA [Concomitant]
     Active Substance: SENNA LEAF
     Indication: CONSTIPATION
     Dosage: 1 MG
     Route: 048
     Dates: start: 20190629, end: 20190629
  25. MACROGOL [Concomitant]
     Active Substance: POLYETHYLENE GLYCOLS
     Dosage: SACHET
     Route: 048
     Dates: start: 20191003, end: 201910
  26. DEXAMETHASONE. [Concomitant]
     Active Substance: DEXAMETHASONE
     Indication: AMNESIA
     Dosage: 8 MILLIGRAM, Q3WK
     Route: 042
     Dates: start: 20190716
  27. DEXAMETHASONE. [Concomitant]
     Active Substance: DEXAMETHASONE
     Indication: HEMIPARESIS
     Dosage: 4 MG, EVERY 0.5 DAY
     Route: 048
     Dates: start: 20190329
  28. DALTEPARIN [Concomitant]
     Active Substance: DALTEPARIN
     Dosage: UNK
  29. ORAMORPH SR SUSTAINED RELEASE [Concomitant]
     Active Substance: MORPHINE SULFATE
     Dosage: 10 MG
     Route: 048
     Dates: start: 20190929, end: 20191003
  30. GRANISETRON [Concomitant]
     Active Substance: GRANISETRON
     Dosage: 1 MG, Q3W
     Route: 042
     Dates: start: 20190716
  31. FENTANYL. [Concomitant]
     Active Substance: FENTANYL
     Indication: PRODUCT USED FOR UNKNOWN INDICATION
     Dosage: 50 MG (EVERY 0.33 DAY)
     Route: 062
     Dates: start: 201911, end: 20200504
  32. METOCLOPRAMIDE. [Concomitant]
     Active Substance: METOCLOPRAMIDE
     Dosage: 10 MG
     Route: 048
     Dates: start: 20190716
  33. MORPHINE SULPHATE [Concomitant]
     Active Substance: MORPHINE SULFATE
     Dosage: 30 MG (EVERY 0.5 DAY)
     Route: 048
     Dates: start: 20190930, end: 20191002
  34. TRASTUZUMAB (UNKNOWN) [Suspect]
     Active Substance: TRASTUZUMAB
     Indication: BREAST CANCER
     Dosage: 693 MILLIGRAM (LOADING DOSE)
     Route: 042
     Dates: start: 20171120, end: 20171120
  35. TRASTUZUMAB EMTANSINE [Suspect]
     Active Substance: ADO-TRASTUZUMAB EMTANSINE
     Indication: BREAST CANCER
     Dosage: 200 MILLIGRAM, Q3WK
     Route: 042
     Dates: start: 20190904
  36. TRASTUZUMAB EMTANSINE [Suspect]
     Active Substance: ADO-TRASTUZUMAB EMTANSINE
     Dosage: 300 MILLIGRAM, Q3WK
     Route: 042
     Dates: start: 20190716, end: 20190813
  37. DEXAMETHASONE. [Concomitant]
     Active Substance: DEXAMETHASONE
     Dosage: 8 MG
     Route: 042
     Dates: start: 20200310, end: 20200310
  38. PARACETAMOL [Concomitant]
     Active Substance: ACETAMINOPHEN
     Indication: PAIN IN EXTREMITY
     Dosage: 1 G
     Route: 048
     Dates: start: 20180624, end: 20180704
  39. OXYGEN. [Concomitant]
     Active Substance: OXYGEN
     Dosage: RESPIRATORY (INHALATION)
     Route: 055
     Dates: start: 20190628, end: 20190701
  40. GENTAMICIN. [Concomitant]
     Active Substance: GENTAMICIN
     Dosage: 120 MG
     Route: 042
     Dates: start: 20200310, end: 20200310
  41. OXYCODONE [Concomitant]
     Active Substance: OXYCODONE
     Dosage: 2.5 MG
     Route: 048
     Dates: start: 20191003
  42. PERTUZUMAB. [Suspect]
     Active Substance: PERTUZUMAB
     Indication: BREAST CANCER
     Dosage: 420 MILLIGRAM, EVERY 3 WEEKS
     Route: 042
     Dates: start: 20171211, end: 20190329
  43. PERTUZUMAB. [Suspect]
     Active Substance: PERTUZUMAB
     Dosage: 840 MG, LOADING DOSE
     Route: 042
     Dates: start: 20171120, end: 20171120
  44. DENOSUMAB [Suspect]
     Active Substance: DENOSUMAB
     Indication: PROPHYLAXIS
     Dosage: 120 MILLIGRAM, Q4WK
     Route: 058
     Dates: start: 20171020
  45. TRASTUZUMAB EMTANSINE [Suspect]
     Active Substance: ADO-TRASTUZUMAB EMTANSINE
     Dosage: 260 MG
     Route: 042
     Dates: start: 20190814, end: 20190903
  46. IBUPROFEN. [Concomitant]
     Active Substance: IBUPROFEN
     Dosage: 400 MG (EVERY 0.33 DAY)
     Route: 048
     Dates: start: 20190930
  47. GLYCERINE [Concomitant]
     Active Substance: GLYCERIN
     Indication: CONSTIPATION
     Dosage: 4 G (RECTUM)
     Dates: start: 20200315, end: 20200315
  48. TRANEXAMIC ACID. [Concomitant]
     Active Substance: TRANEXAMIC ACID
     Dosage: 1 G
     Route: 042
     Dates: start: 20200310, end: 20200310
  49. ORAMORPH SR SUSTAINED RELEASE [Concomitant]
     Active Substance: MORPHINE SULFATE
     Dosage: 5 MILLIGRAM, (EVEY 0.5 DAY)
     Route: 048
     Dates: start: 201912, end: 20200104
  50. LEVOFLOXACIN. [Concomitant]
     Active Substance: LEVOFLOXACIN
     Dosage: 500 MG, QD
     Route: 048
     Dates: start: 20191008, end: 20191014
  51. ZERODERM [Concomitant]
     Indication: ERYTHEMA
     Dosage: 1 MG, DAILY
     Route: 061
     Dates: start: 20181012

REACTIONS (4)
  - Off label use [Unknown]
  - Off label use [Unknown]
  - Fatigue [Not Recovered/Not Resolved]
  - Pneumonia [Fatal]

NARRATIVE: CASE EVENT DATE: 20171120
